FAERS Safety Report 7443185-5 (Version None)
Quarter: 2011Q2

REPORT INFORMATION
  Report Type: 
  Country: None (occurrence: None)
  Receive Date: 20110428
  Receipt Date: 20110422
  Transmission Date: 20111010
  Serious: Yes (Other)
  Sender: FDA-Public Use
  Company Number: A0924810A

PATIENT
  Sex: Male

DRUGS (1)
  1. SEREVENT [Suspect]
     Route: 055

REACTIONS (1)
  - APPARENT DEATH [None]
